FAERS Safety Report 17116619 (Version 1)
Quarter: 2019Q4

REPORT INFORMATION
  Report Type: Spontaneous
  Country: PL (occurrence: PL)
  Receive Date: 20191205
  Receipt Date: 20191205
  Transmission Date: 20200122
  Serious: Yes (Hospitalization, Other)
  Sender: FDA-Public Use
  Company Number: PL-MYLANLABS-2019M1118730

PATIENT
  Age: 10 Year
  Sex: Female

DRUGS (1)
  1. QUETIAPINE. [Suspect]
     Active Substance: QUETIAPINE
     Indication: PRODUCT USED FOR UNKNOWN INDICATION
     Dosage: UNK
     Route: 065

REACTIONS (8)
  - Child abuse [Unknown]
  - Intentional product use issue [Unknown]
  - Product administered to patient of inappropriate age [Unknown]
  - Confusional state [Unknown]
  - Balance disorder [Unknown]
  - Somnolence [Unknown]
  - Syncope [Unknown]
  - Apathy [Unknown]
